FAERS Safety Report 25046498 (Version 1)
Quarter: 2025Q1

REPORT INFORMATION
  Report Type: Spontaneous
  Country: GB (occurrence: GB)
  Receive Date: 20250306
  Receipt Date: 20250306
  Transmission Date: 20250408
  Serious: Yes (Other)
  Sender: LUNDBECK
  Company Number: GB-MHRA-TPP273810C921397YC1740645906263

PATIENT
  Age: 38 Year
  Sex: Male
  Weight: 102 kg

DRUGS (9)
  1. VIGABATRIN [Suspect]
     Active Substance: VIGABATRIN
     Indication: Product used for unknown indication
     Dosage: 1500 MG, BID
  2. AMOXICILLIN [Concomitant]
     Active Substance: AMOXICILLIN
     Indication: Product used for unknown indication
     Dosage: 2X5ML SPOON 3 TIMES/DAY
     Dates: start: 20250106, end: 20250111
  3. CONOTRANE [DIMETICONE;HYDRARGAPHEN] [Concomitant]
     Indication: Product used for unknown indication
     Dates: start: 20240126
  4. FLUOXETINE [Concomitant]
     Active Substance: FLUOXETINE HYDROCHLORIDE
     Indication: Product used for unknown indication
     Dosage: 1X5ML SPOON DAILY
     Dates: start: 20240126
  5. LORAZEPAM [Concomitant]
     Active Substance: LORAZEPAM
     Indication: Product used for unknown indication
     Dates: start: 20240126
  6. ACETAMINOPHEN [Concomitant]
     Active Substance: ACETAMINOPHEN
     Indication: Product used for unknown indication
     Dates: start: 20240126
  7. VALPROATE SODIUM [Concomitant]
     Active Substance: VALPROATE SODIUM
     Indication: Product used for unknown indication
     Dosage: 25 ML, BID
     Dates: start: 20240126
  8. CHOLECALCIFEROL [Concomitant]
     Active Substance: CHOLECALCIFEROL
     Indication: Product used for unknown indication
     Dosage: 100 IU, QD PRN
     Dates: start: 20240319
  9. POLYETHYLENE GLYCOL 3350\POTASSIUM CHLORIDE\SODIUM BICARBONATE\SODIUM [Concomitant]
     Active Substance: POLYETHYLENE GLYCOL 3350\POTASSIUM CHLORIDE\SODIUM BICARBONATE\SODIUM CHLORIDE
     Indication: Product used for unknown indication
     Dates: start: 20240816

REACTIONS (4)
  - Retinal toxicity [Not Recovered/Not Resolved]
  - Blindness [Not Recovered/Not Resolved]
  - Retinal injury [Not Recovered/Not Resolved]
  - Retinal disorder [Not Recovered/Not Resolved]
